FAERS Safety Report 10387225 (Version 1)
Quarter: 2014Q3

REPORT INFORMATION
  Report Type: Spontaneous
  Country: IT (occurrence: IT)
  Receive Date: 20140815
  Receipt Date: 20140815
  Transmission Date: 20150326
  Serious: Yes (Death, Hospitalization)
  Sender: FDA-Public Use
  Company Number: IT-PFIZER INC-2014224223

PATIENT
  Age: 71 Year
  Sex: Male

DRUGS (1)
  1. EFFEXOR [Suspect]
     Active Substance: VENLAFAXINE HYDROCHLORIDE
     Dosage: 3 G, UNK

REACTIONS (11)
  - Pulseless electrical activity [Unknown]
  - Convulsion [Unknown]
  - Cardiac arrest [Fatal]
  - Myocardial infarction [Unknown]
  - Pulmonary oedema [Unknown]
  - Tongue biting [Unknown]
  - Overdose [Fatal]
  - Electrocardiogram QRS complex prolonged [Unknown]
  - Confusional state [Unknown]
  - Bradycardia [Unknown]
  - Brain oedema [Unknown]
